FAERS Safety Report 9320870 (Version 1)
Quarter: 2013Q2

REPORT INFORMATION
  Report Type: Spontaneous
  Country: GB (occurrence: None)
  Receive Date: 20130528
  Receipt Date: 20130528
  Transmission Date: 20140414
  Serious: Yes (Disabling)
  Sender: FDA-Public Use
  Company Number: 1719111

PATIENT
  Age: 7 Year
  Sex: Male

DRUGS (3)
  1. CYTARABINE [Suspect]
     Indication: ACUTE LYMPHOCYTIC LEUKAEMIA
     Dosage: 75 MG/M^2, IV
     Route: 042
  2. METHOTREXATE [Suspect]
     Indication: ACUTE LYMPHOCYTIC LEUKAEMIA
     Route: 037
  3. CYCLOPHOSPHAMIDE [Suspect]
     Indication: ACUTE LYMPHOCYTIC LEUKAEMIA
     Dosage: 1000 MG/M^2, IV
     Route: 042

REACTIONS (6)
  - Paralysis flaccid [None]
  - Conversion disorder [None]
  - Irritability [None]
  - Inappropriate affect [None]
  - Aphasia [None]
  - VIIth nerve paralysis [None]
